FAERS Safety Report 18182231 (Version 4)
Quarter: 2023Q1

REPORT INFORMATION
  Report Type: Spontaneous
  Country: FR (occurrence: FR)
  Receive Date: 20200821
  Receipt Date: 20230307
  Transmission Date: 20230418
  Serious: Yes (Other)
  Sender: FDA-Public Use
  Company Number: FR-MYLANLABS-2020M1070285

PATIENT
  Age: 35 Year
  Sex: Female

DRUGS (8)
  1. HYDROCORTISONE [Suspect]
     Active Substance: HYDROCORTISONE
     Indication: Adrenal insufficiency
     Dosage: 2 TO 3 ADMINISTRATIONS PER DAY, 10 MG IN MORNING
     Route: 048
  2. HYDROCORTISONE [Suspect]
     Active Substance: HYDROCORTISONE
     Indication: Adrenal insufficiency
     Dosage: 2 TO 3 ADMINISTRATIONS PER DAY, 10 MG IN MORNING
     Route: 058
  3. OXYCODONE [Suspect]
     Active Substance: OXYCODONE
     Indication: Pain
     Dosage: 60 MILLIGRAM
     Route: 048
  4. PREDNISONE [Suspect]
     Active Substance: PREDNISONE
     Indication: Product used for unknown indication
     Dosage: 2 MG IN THE MORNING AND 3 MG IN THE EVENING
     Route: 065
  5. FENTANYL [Suspect]
     Active Substance: FENTANYL
     Indication: Pain
     Dosage: 75 MILLIGRAM, Q3D (EVERY 3 DAYS)
     Route: 062
  6. FLUDROCORTISONE [Suspect]
     Active Substance: FLUDROCORTISONE
     Indication: Adrenal insufficiency
     Dosage: UNK
     Route: 065
  7. PRASTERONE [Suspect]
     Active Substance: PRASTERONE
     Indication: Adrenal insufficiency
     Dosage: UNK
     Route: 065
  8. PRASTERONE [Suspect]
     Active Substance: PRASTERONE
     Indication: Product used for unknown indication
     Dosage: UNK
     Route: 065

REACTIONS (7)
  - Ankylosing spondylitis [Unknown]
  - Arthralgia [Unknown]
  - Asthenia [Recovering/Resolving]
  - Disturbance in attention [Unknown]
  - Dermatitis allergic [Recovering/Resolving]
  - Weight increased [Unknown]
  - Drug ineffective [Unknown]
